FAERS Safety Report 20985561 (Version 3)
Quarter: 2023Q1

REPORT INFORMATION
  Report Type: Report from Study
  Country: US (occurrence: US)
  Receive Date: 20220621
  Receipt Date: 20230216
  Transmission Date: 20230418
  Serious: Yes (Hospitalization)
  Sender: FDA-Public Use
  Company Number: US-TAKEDA-2022TUS039935

PATIENT
  Age: 11 Year
  Sex: Female
  Weight: 29.1 kg

DRUGS (34)
  1. TEDUGLUTIDE [Suspect]
     Active Substance: TEDUGLUTIDE
     Indication: Short-bowel syndrome
     Dosage: 999 MILLIGRAM, QD
     Route: 042
     Dates: start: 20191101, end: 20200206
  2. TEDUGLUTIDE [Suspect]
     Active Substance: TEDUGLUTIDE
     Indication: Short-bowel syndrome
     Dosage: 999 MILLIGRAM, QD
     Route: 042
     Dates: start: 20191101, end: 20200206
  3. TEDUGLUTIDE [Suspect]
     Active Substance: TEDUGLUTIDE
     Indication: Short-bowel syndrome
     Dosage: 999 MILLIGRAM, QD
     Route: 042
     Dates: start: 20191101, end: 20200206
  4. TEDUGLUTIDE [Suspect]
     Active Substance: TEDUGLUTIDE
     Indication: Short-bowel syndrome
     Dosage: 999 MILLIGRAM, QD
     Route: 042
     Dates: start: 20191101, end: 20200206
  5. TEDUGLUTIDE [Suspect]
     Active Substance: TEDUGLUTIDE
     Dosage: 1.1 MILLIGRAM, QD
     Route: 042
     Dates: start: 20200207, end: 20201119
  6. TEDUGLUTIDE [Suspect]
     Active Substance: TEDUGLUTIDE
     Dosage: 1.1 MILLIGRAM, QD
     Route: 042
     Dates: start: 20200207, end: 20201119
  7. TEDUGLUTIDE [Suspect]
     Active Substance: TEDUGLUTIDE
     Dosage: 1.1 MILLIGRAM, QD
     Route: 042
     Dates: start: 20200207, end: 20201119
  8. TEDUGLUTIDE [Suspect]
     Active Substance: TEDUGLUTIDE
     Dosage: 1.1 MILLIGRAM, QD
     Route: 042
     Dates: start: 20200207, end: 20201119
  9. ZYRTEC [Concomitant]
     Active Substance: CETIRIZINE HYDROCHLORIDE
     Indication: Multiple allergies
     Dosage: 5 MILLIGRAM, QD
     Route: 048
     Dates: start: 20220505, end: 20220512
  10. ZYRTEC [Concomitant]
     Active Substance: CETIRIZINE HYDROCHLORIDE
     Dosage: 1 MILLIGRAM/KILOGRAM, QD
     Route: 048
     Dates: start: 2019
  11. FAMOTIDINE [Concomitant]
     Active Substance: FAMOTIDINE
     Indication: Parenteral nutrition
     Dosage: 20 MILLIGRAM, BID
     Route: 048
     Dates: start: 20220504, end: 20220507
  12. CIPROFLOXACIN [Concomitant]
     Active Substance: CIPROFLOXACIN
     Indication: Abdominal infection
     Dosage: 225 MILLIGRAM, BID
     Route: 048
     Dates: start: 20220504, end: 20220512
  13. CIPROFLOXACIN [Concomitant]
     Active Substance: CIPROFLOXACIN
     Indication: Prophylaxis
     Dosage: 2.7 MILLILITER, BID
     Route: 050
     Dates: start: 20150731, end: 20150830
  14. CIPROFLOXACIN [Concomitant]
     Active Substance: CIPROFLOXACIN
     Indication: Infection prophylaxis
     Dosage: 20 MILLILITER, BID
     Route: 050
     Dates: start: 20170323, end: 20170422
  15. CIPROFLOXACIN [Concomitant]
     Active Substance: CIPROFLOXACIN
     Dosage: 4.5 MILLILITER
     Route: 048
     Dates: start: 20210103
  16. LOPERAMIDE [Concomitant]
     Active Substance: LOPERAMIDE
     Indication: Gastrointestinal stoma output increased
     Dosage: 2 MILLIGRAM, BID
     Route: 048
     Dates: start: 20220505, end: 20220512
  17. LOPERAMIDE [Concomitant]
     Active Substance: LOPERAMIDE
     Indication: Prophylaxis against diarrhoea
     Dosage: 6.5 MILLILITER, QID
     Route: 050
     Dates: start: 20150522
  18. ESOMEPRAZOLE [Concomitant]
     Active Substance: ESOMEPRAZOLE
     Indication: Gastrooesophageal reflux disease
     Dosage: 10 MILLIGRAM, QD
     Route: 048
     Dates: start: 20220505, end: 20220512
  19. ESOMEPRAZOLE [Concomitant]
     Active Substance: ESOMEPRAZOLE
     Dosage: 10 MILLIGRAM, QD
     Route: 050
     Dates: start: 20170818
  20. FLONASE [Concomitant]
     Active Substance: FLUTICASONE PROPIONATE
     Indication: Multiple allergies
     Dosage: 50 MICROGRAM, BID
     Route: 050
     Dates: start: 20210528
  21. BACTRIM [Concomitant]
     Active Substance: SULFAMETHOXAZOLE\TRIMETHOPRIM
     Indication: Overgrowth bacterial
     Dosage: 8.4 MILLILITER, BID
     Route: 048
     Dates: start: 20220102
  22. METRONIDAZOLE [Concomitant]
     Active Substance: METRONIDAZOLE
     Indication: Prophylaxis
     Dosage: 2.1 MILLILITER, BID
     Route: 050
     Dates: start: 20151002, end: 20151101
  23. METRONIDAZOLE [Concomitant]
     Active Substance: METRONIDAZOLE
     Dosage: 2.2 MILLILITER, BID
     Route: 050
     Dates: start: 20160114, end: 20160128
  24. METRONIDAZOLE [Concomitant]
     Active Substance: METRONIDAZOLE
     Dosage: 2.2 MILLILITER, BID
     Route: 050
     Dates: start: 20160318, end: 20160417
  25. METRONIDAZOLE [Concomitant]
     Active Substance: METRONIDAZOLE
     Dosage: 7.5 MILLIGRAM, BID
     Route: 050
     Dates: start: 20161118, end: 20161218
  26. METRONIDAZOLE [Concomitant]
     Active Substance: METRONIDAZOLE
     Dosage: 2.6 MILLILITER, BID
     Route: 050
     Dates: start: 20171013, end: 20171112
  27. RIFAXIMIN [Concomitant]
     Active Substance: RIFAXIMIN
     Indication: Prophylaxis
     Dosage: 200 MILLIGRAM, QD
     Route: 050
     Dates: start: 20160708, end: 20160909
  28. RIFAXIMIN [Concomitant]
     Active Substance: RIFAXIMIN
     Indication: Irritable bowel syndrome
     Dosage: 200 MILLIGRAM, QD
     Route: 050
     Dates: start: 20171013
  29. ONDANSETRON [Concomitant]
     Active Substance: ONDANSETRON
     Indication: Prophylaxis of nausea and vomiting
     Dosage: 4 MILLIGRAM, BID
     Route: 048
     Dates: start: 20161026, end: 20170303
  30. ONDANSETRON [Concomitant]
     Active Substance: ONDANSETRON
     Dosage: 4 MILLIGRAM, TID
     Route: 048
     Dates: start: 20170818
  31. CEFTRIAXONE [Concomitant]
     Active Substance: CEFTRIAXONE
     Indication: Sepsis
     Dosage: 1000 MILLIGRAM, SINGLE
     Route: 042
     Dates: start: 20190901, end: 20190901
  32. IBUPROFEN [Concomitant]
     Active Substance: IBUPROFEN
     Indication: Pain
     Dosage: 196 MILLIGRAM
     Route: 048
     Dates: start: 20190901, end: 20190902
  33. ALTEPLASE [Concomitant]
     Active Substance: ALTEPLASE
     Dosage: 1 MILLIGRAM, SINGLE
     Route: 050
     Dates: start: 20190901, end: 20190901
  34. FLAGYL [Concomitant]
     Active Substance: METRONIDAZOLE\METRONIDAZOLE HYDROCHLORIDE
     Indication: Overgrowth bacterial
     Dosage: 3.2 MILLILITER, BID
     Route: 050
     Dates: start: 20200206

REACTIONS (1)
  - Hypernatraemia [Recovered/Resolved]

NARRATIVE: CASE EVENT DATE: 20220504
